FAERS Safety Report 10193713 (Version 1)
Quarter: 2014Q2

REPORT INFORMATION
  Report Type: Spontaneous
  Country: US (occurrence: US)
  Receive Date: 20140524
  Receipt Date: 20140524
  Transmission Date: 20141212
  Serious: No
  Sender: FDA-Public Use
  Company Number: US-SA-2014SA000934

PATIENT
  Age: 65 Year
  Sex: Male
  Weight: 82 kg

DRUGS (1)
  1. LANTUS [Suspect]
     Indication: TYPE 2 DIABETES MELLITUS
     Dosage: TAKEN FROM: 10 YEARS DOSE:64 UNIT(S)
     Route: 051

REACTIONS (4)
  - Visual acuity reduced [Unknown]
  - Memory impairment [Unknown]
  - Cough [Unknown]
  - Injection site pain [Unknown]
